FAERS Safety Report 5034080-X (Version None)
Quarter: 2006Q2

REPORT INFORMATION
  Report Type: 
  Country: None (occurrence: None)
  Receive Date: 20060626
  Receipt Date: 20060616
  Transmission Date: 20061013
  Serious: Yes (Other)
  Sender: FDA-Public Use
  Company Number: US-ABBOTT-06P-163-0336230-00

PATIENT
  Age: 36 Year
  Sex: Female

DRUGS (5)
  1. DEPAKOTE [Suspect]
     Indication: CONVULSION
     Dates: start: 20031202
  2. DEPAKOTE [Suspect]
     Dates: end: 20031202
  3. DEPAKOTE [Suspect]
  4. FOLIC ACID [Concomitant]
     Indication: DRUG USE FOR UNKNOWN INDICATION
  5. MULTIVITAMIN [Concomitant]
     Indication: DRUG USE FOR UNKNOWN INDICATION

REACTIONS (2)
  - ABORTION SPONTANEOUS [None]
  - DRUG EXPOSURE BEFORE PREGNANCY [None]
